FAERS Safety Report 9908878 (Version 1)
Quarter: 2014Q1

REPORT INFORMATION
  Report Type: Spontaneous
  Country: US (occurrence: None)
  Receive Date: 20140212
  Receipt Date: 20140212
  Transmission Date: 20141002
  Serious: Yes (Hospitalization)
  Sender: FDA-Public Use
  Company Number: None

PATIENT
  Age: 37 Year
  Sex: Male
  Weight: 91.49 kg

DRUGS (1)
  1. ASTHMACARE [Suspect]
     Indication: ASTHMA
     Dosage: 3 SPRAYS, 3X/DAY ORAL
     Route: 048
     Dates: start: 20131216

REACTIONS (3)
  - Asthma [None]
  - Vomiting [None]
  - Chronic obstructive pulmonary disease [None]
